FAERS Safety Report 18598727 (Version 1)
Quarter: 2020Q4

REPORT INFORMATION
  Report Type: Spontaneous
  Country: NL (occurrence: NL)
  Receive Date: 20201210
  Receipt Date: 20201210
  Transmission Date: 20210114
  Serious: Yes (Other)
  Sender: FDA-Public Use
  Company Number: NL-AUROBINDO-AUR-APL-2020-059892

PATIENT
  Age: 71 Year
  Sex: Female
  Weight: 95 kg

DRUGS (1)
  1. VALACICLOVIR [Suspect]
     Active Substance: VALACYCLOVIR HYDROCHLORIDE
     Indication: ENCEPHALITIS
     Dosage: 500 MILLIGRAM, FOUR TIMES/DAY
     Route: 048

REACTIONS (1)
  - Drug ineffective [Unknown]
